FAERS Safety Report 4350828-1 (Version None)
Quarter: 2004Q2

REPORT INFORMATION
  Report Type: 
  Country: None (occurrence: None)
  Receive Date: 20040427
  Receipt Date: 20040412
  Transmission Date: 20050107
  Serious: Yes (Other)
  Sender: FDA-Public Use
  Company Number: 205868

PATIENT
  Age: 14 Year
  Sex: Female

DRUGS (15)
  1. NUTROPIN [Suspect]
     Dates: start: 19911020
  2. CORTEF [Concomitant]
  3. SYNTHROID [Concomitant]
  4. CALCIUM (CALCIUM NOS) [Concomitant]
  5. SODIUM (SODIUM NOS) [Concomitant]
  6. PEPCID [Concomitant]
  7. NEURONTIN [Concomitant]
  8. ALLEGRA [Concomitant]
  9. TOPAMAX [Concomitant]
  10. SIMETHICONE (SIMETHICONE) [Concomitant]
  11. ALBUTEROL (ALBUTEROL, ALBUTEROL SULFATE) [Concomitant]
  12. INTAL [Concomitant]
  13. ATROVENT [Concomitant]
  14. PULMICORT [Concomitant]
  15. TOBRAMYCIN [Concomitant]

REACTIONS (2)
  - CONVULSION [None]
  - TACHYCARDIA [None]
